FAERS Safety Report 11844185 (Version 2)
Quarter: 2016Q1

REPORT INFORMATION
  Report Type: Report from Study
  Country: JP (occurrence: JP)
  Receive Date: 20151217
  Receipt Date: 20160114
  Transmission Date: 20160526
  Serious: Yes (Hospitalization)
  Sender: FDA-Public Use
  Company Number: JP-BIOGEN-C201506123

PATIENT
  Age: 41 Year
  Sex: Female
  Weight: 48 kg

DRUGS (2)
  1. BETAFERON [Concomitant]
     Active Substance: INTERFERON BETA-1B
     Indication: MULTIPLE SCLEROSIS
     Route: 058
     Dates: start: 200603
  2. BIIB041 [Suspect]
     Active Substance: DALFAMPRIDINE
     Indication: GAIT DISTURBANCE
     Route: 048
     Dates: start: 20150526

REACTIONS (1)
  - Facial bones fracture [Recovered/Resolved]

NARRATIVE: CASE EVENT DATE: 20151203
